FAERS Safety Report 19053243 (Version 7)
Quarter: 2022Q1

REPORT INFORMATION
  Report Type: Report from Study
  Country: CL (occurrence: CL)
  Receive Date: 20210324
  Receipt Date: 20220304
  Transmission Date: 20220423
  Serious: Yes (Death, Life-Threatening, Other)
  Sender: FDA-Public Use
  Company Number: CL-BOEHRINGERINGELHEIM-2019-BI-032482

PATIENT
  Age: 69 Year
  Sex: Male
  Weight: 64 kg

DRUGS (1)
  1. NINTEDANIB [Suspect]
     Active Substance: NINTEDANIB
     Indication: Pulmonary fibrosis
     Route: 048
     Dates: start: 20190712, end: 20190729

REACTIONS (2)
  - Multiple organ dysfunction syndrome [Fatal]
  - Pulmonary fibrosis [Recovered/Resolved]

NARRATIVE: CASE EVENT DATE: 20190726
